FAERS Safety Report 17803852 (Version 10)
Quarter: 2020Q3

REPORT INFORMATION
  Report Type: Spontaneous
  Country: US (occurrence: US)
  Receive Date: 20200519
  Receipt Date: 20200814
  Transmission Date: 20201102
  Serious: Yes (Hospitalization)
  Sender: FDA-Public Use
  Company Number: US-ACTELION-A-US2020-204915

PATIENT
  Age: 38 Year
  Sex: Female
  Weight: 61.22 kg

DRUGS (3)
  1. ELIQUIS [Concomitant]
     Active Substance: APIXABAN
  2. TREPROSTINIL. [Concomitant]
     Active Substance: TREPROSTINIL
  3. OPSUMIT [Suspect]
     Active Substance: MACITENTAN
     Indication: PULMONARY HYPERTENSION
     Dosage: 10 MG, QD
     Route: 048

REACTIONS (11)
  - Catheter management [Unknown]
  - Hyperhidrosis [Unknown]
  - Vascular device infection [Unknown]
  - Pain [Unknown]
  - Application site pruritus [Unknown]
  - Weight decreased [Unknown]
  - Pain in extremity [Unknown]
  - Decreased appetite [Unknown]
  - Catheter site discharge [Unknown]
  - Device dislocation [Unknown]
  - Dyspnoea exertional [Not Recovered/Not Resolved]

NARRATIVE: CASE EVENT DATE: 20200513
